FAERS Safety Report 4773840-7 (Version None)
Quarter: 2005Q3

REPORT INFORMATION
  Report Type: 
  Country: None (occurrence: None)
  Receive Date: 20050919
  Receipt Date: 20050908
  Transmission Date: 20060218
  Serious: Yes (Hospitalization)
  Sender: FDA-Public Use
  Company Number: 200510564BNE

PATIENT
  Age: 78 Year
  Sex: Female

DRUGS (9)
  1. MOXIFLOXACIN HCL [Suspect]
     Indication: PNEUMONIA
     Dosage: 400 MG, TOTAL DAILY, ORAL
     Route: 048
     Dates: start: 20050808, end: 20050810
  2. DIGOXIN [Concomitant]
  3. FUROSEMIDE [Concomitant]
  4. WARFARIN SODIUM [Concomitant]
  5. BECLOMETHASONE DIPROPIONATE [Concomitant]
  6. TERBUTALINE [Concomitant]
  7. PREDNISOLONE [Concomitant]
  8. COMBIVENT [Concomitant]
  9. SYMBICORT [Concomitant]

REACTIONS (1)
  - DIARRHOEA HAEMORRHAGIC [None]
